FAERS Safety Report 24643120 (Version 8)
Quarter: 2025Q4

REPORT INFORMATION
  Report Type: Report from Study
  Country: US (occurrence: US)
  Receive Date: 20241120
  Receipt Date: 20251222
  Transmission Date: 20260118
  Serious: Yes (Other)
  Sender: PFIZER
  Company Number: US-PFIZER INC-202400303575

PATIENT
  Age: 74 Year
  Sex: Female

DRUGS (1)
  1. XELJANZ XR [Suspect]
     Active Substance: TOFACITINIB CITRATE
     Dosage: 11 MG

REACTIONS (7)
  - Pneumonia [Unknown]
  - Intervertebral disc operation [Unknown]
  - Memory impairment [Recovering/Resolving]
  - Brain fog [Unknown]
  - Asthenia [Not Recovered/Not Resolved]
  - Influenza [Unknown]
  - Illness [Unknown]
